FAERS Safety Report 15992143 (Version 9)
Quarter: 2019Q4

REPORT INFORMATION
  Report Type: Spontaneous
  Country: US (occurrence: US)
  Receive Date: 20190221
  Receipt Date: 20191230
  Transmission Date: 20200122
  Serious: No
  Sender: FDA-Public Use
  Company Number: US-PFIZER INC-2019068877

PATIENT
  Age: 59 Year
  Sex: Female
  Weight: 78.91 kg

DRUGS (3)
  1. LYRICA [Suspect]
     Active Substance: PREGABALIN
     Dosage: 2 DF, TWICE A DAY
     Route: 048
     Dates: start: 20190624
  2. LYRICA [Suspect]
     Active Substance: PREGABALIN
     Indication: TRIGEMINAL NEURALGIA
     Dosage: 150 MG, DAILY (TAKING HALF THE DOSE SHE IS PRESCRIBED)
     Route: 048
  3. LYRICA [Suspect]
     Active Substance: PREGABALIN
     Indication: POST HERPETIC NEURALGIA
     Dosage: 300 MG, DAILY (75MG CAPSULE BY MOUTH TWO IN THE MORNING AND TWO AT NIGHT)
     Route: 048
     Dates: start: 20181001

REACTIONS (12)
  - Discomfort [Unknown]
  - Skin burning sensation [Unknown]
  - Withdrawal syndrome [Unknown]
  - Paraesthesia [Unknown]
  - Nasopharyngitis [Unknown]
  - Pruritus [Unknown]
  - Feeling abnormal [Not Recovered/Not Resolved]
  - Dysphonia [Unknown]
  - Formication [Unknown]
  - Local reaction [Unknown]
  - Intentional product misuse [Unknown]
  - Malaise [Unknown]
